FAERS Safety Report 9809749 (Version 2)
Quarter: 2014Q1

REPORT INFORMATION
  Report Type: Spontaneous
  Country: RU (occurrence: RU)
  Receive Date: 20140110
  Receipt Date: 20140228
  Transmission Date: 20141002
  Serious: Yes (Other)
  Sender: FDA-Public Use
  Company Number: PHHY2013RU155072

PATIENT
  Age: 65 Year
  Sex: Female

DRUGS (3)
  1. ACLASTA [Suspect]
     Indication: OSTEOPOROSIS
     Dosage: UNK
     Route: 042
     Dates: start: 20131214
  2. CALCIUM D3 NYCOMED [Concomitant]
     Dosage: 4 DAYS PRIOR TO INJECTION OF ACLASTA
  3. CRESTOR [Concomitant]
     Dosage: 4 DAYS PRIOR TO INJECTION OF ACLASTA

REACTIONS (8)
  - Neutropenia [Unknown]
  - White blood cell count decreased [Unknown]
  - Body temperature increased [Recovered/Resolved]
  - Headache [Recovered/Resolved]
  - Vomiting [Recovered/Resolved]
  - Chills [Recovered/Resolved]
  - Decreased appetite [Unknown]
  - Hypocalcaemia [Unknown]
